FAERS Safety Report 17814661 (Version 1)
Quarter: 2020Q2

REPORT INFORMATION
  Report Type: Spontaneous
  Country: US (occurrence: US)
  Receive Date: 20200522
  Receipt Date: 20200522
  Transmission Date: 20200714
  Serious: Yes (Other)
  Sender: FDA-Public Use
  Company Number: US-PFIZER INC-2020201838

PATIENT

DRUGS (1)
  1. ESTROGENS CONJUGATED/MEDROXYPROGESTERONE ACETATE [Suspect]
     Active Substance: ESTROGENS, CONJUGATED\MEDROXYPROGESTERONE ACETATE

REACTIONS (4)
  - Malaise [Unknown]
  - Migraine [Unknown]
  - Neoplasm malignant [Unknown]
  - Drug ineffective [Unknown]
